FAERS Safety Report 21521076 (Version 1)
Quarter: 2022Q4

REPORT INFORMATION
  Report Type: Report from Study
  Country: US (occurrence: US)
  Receive Date: 20221028
  Receipt Date: 20221028
  Transmission Date: 20230112
  Serious: Yes (Other)
  Sender: FDA-Public Use
  Company Number: US-ABBVIE-4177716

PATIENT
  Sex: Male

DRUGS (1)
  1. HUMIRA [Suspect]
     Active Substance: ADALIMUMAB
     Indication: Crohn^s disease
     Route: 058

REACTIONS (5)
  - Micrographic skin surgery [Unknown]
  - Skin disorder [Unknown]
  - Blood testosterone decreased [Unknown]
  - Stress [Unknown]
  - Suture rupture [Unknown]

NARRATIVE: CASE EVENT DATE: 20220101
